FAERS Safety Report 7531301-6 (Version None)
Quarter: 2011Q2

REPORT INFORMATION
  Report Type: 
  Country: None (occurrence: None)
  Receive Date: 20110531
  Receipt Date: 20110516
  Transmission Date: 20111010
  Serious: Yes (Other)
  Sender: FDA-Public Use
  Company Number: 2011MA005976

PATIENT
  Age: 15 Year

DRUGS (3)
  1. FEVERALL [Suspect]
     Dosage: 500 MG
  2. DIPYRONE [Concomitant]
  3. CARBOCYSTENINE [Concomitant]

REACTIONS (4)
  - RENAL FAILURE [None]
  - BACK PAIN [None]
  - VOMITING [None]
  - ABDOMINAL PAIN [None]
